FAERS Safety Report 25741523 (Version 1)
Quarter: 2025Q3

REPORT INFORMATION
  Report Type: Spontaneous
  Country: US (occurrence: None)
  Receive Date: 20250829
  Receipt Date: 20250829
  Transmission Date: 20251021
  Serious: Yes (Hospitalization)
  Sender: FDA-CTU
  Company Number: None

PATIENT
  Age: 69 Year
  Sex: Male

DRUGS (13)
  1. MYCOPHENOLIC ACID [Suspect]
     Active Substance: MYCOPHENOLIC ACID
     Indication: Renal transplant
     Dosage: 720 MG/MG BID ORAL ?
     Route: 048
     Dates: start: 20230830
  2. LOSARTAN [Concomitant]
     Active Substance: LOSARTAN
  3. ROPINIROLE 1MG TABLETS [Concomitant]
  4. TRULICITY 4.5MG/0.5ML INJ (4 PENS) [Concomitant]
  5. AMLODIPINE BESYLATE [Concomitant]
     Active Substance: AMLODIPINE BESYLATE
  6. MYCOPHENOLIC ACID [Concomitant]
     Active Substance: MYCOPHENOLIC ACID
  7. OMEPRAZOLE [Concomitant]
     Active Substance: OMEPRAZOLE
  8. ROSUVASTATIN [Concomitant]
     Active Substance: ROSUVASTATIN
  9. TRAMADOL HYDROCHLORIDE [Concomitant]
     Active Substance: TRAMADOL HYDROCHLORIDE
  10. TRAZODONE [Concomitant]
     Active Substance: TRAZODONE HYDROCHLORIDE
  11. ZOFRAN 4MG TABLETS [Concomitant]
  12. VITAMINS [Concomitant]
     Active Substance: VITAMINS
  13. NULOJIX 250MG IN,I, 1 VIAL [Concomitant]

REACTIONS (2)
  - Cellulitis [None]
  - Finger amputation [None]

NARRATIVE: CASE EVENT DATE: 20250828
